FAERS Safety Report 11615443 (Version 1)
Quarter: 2015Q4

REPORT INFORMATION
  Report Type: Spontaneous
  Country: US (occurrence: None)
  Receive Date: 20151008
  Receipt Date: 20151008
  Transmission Date: 20160304
  Serious: Yes (Other)
  Sender: FDA-Public Use
  Company Number: None

PATIENT
  Age: 13 Year
  Sex: Female
  Weight: 56.7 kg

DRUGS (1)
  1. GENERIC LEXAPRO 2.5 MG [Suspect]
     Active Substance: ESCITALOPRAM OXALATE
     Indication: DEPRESSION
     Route: 048
     Dates: start: 20150814, end: 20150817

REACTIONS (4)
  - Eye swelling [None]
  - Pyrexia [None]
  - Swelling face [None]
  - Urticaria [None]

NARRATIVE: CASE EVENT DATE: 20150817
